FAERS Safety Report 13661473 (Version 1)
Quarter: 2017Q2

REPORT INFORMATION
  Report Type: Spontaneous
  Country: US (occurrence: US)
  Receive Date: 20170616
  Receipt Date: 20170616
  Transmission Date: 20170830
  Serious: No
  Sender: FDA-Public Use
  Company Number: US-US WORLDMEDS, LLC-USW201610-000682

PATIENT
  Sex: Female
  Weight: 63.95 kg

DRUGS (20)
  1. CARBIDOPA/LEVODOPA [Concomitant]
     Active Substance: CARBIDOPA\LEVODOPA
  2. DULOXETINE. [Concomitant]
     Active Substance: DULOXETINE
  3. CALCIUM CITRATE [Concomitant]
     Active Substance: CALCIUM CITRATE
  4. NASONEX [Concomitant]
     Active Substance: MOMETASONE FUROATE
  5. OMEPRAZOLE. [Concomitant]
     Active Substance: OMEPRAZOLE
  6. METOPROLOL. [Concomitant]
     Active Substance: METOPROLOL
  7. APOKYN [Suspect]
     Active Substance: APOMORPHINE HYDROCHLORIDE
  8. SYSTANE (HYPROMELLOSE 2910 (4000 MPA.S)) [Concomitant]
     Active Substance: HYPROMELLOSE 2910 (4000 MPA.S)
     Route: 047
  9. BOTOX [Suspect]
     Active Substance: ONABOTULINUMTOXINA
  10. COLACE [Concomitant]
     Active Substance: DOCUSATE SODIUM
  11. IBANDRA [Concomitant]
  12. LOTMAX [Concomitant]
  13. VITAMIN D3 [Concomitant]
     Active Substance: CHOLECALCIFEROL
  14. FUROSEMIDE. [Concomitant]
     Active Substance: FUROSEMIDE
  15. APOKYN [Suspect]
     Active Substance: APOMORPHINE HYDROCHLORIDE
     Indication: PARKINSON^S DISEASE
     Route: 058
  16. NEUPRO [Concomitant]
     Active Substance: ROTIGOTINE
     Route: 062
  17. ESTRACE [Concomitant]
     Active Substance: ESTRADIOL
  18. POTASSIUM CHLORIDE. [Concomitant]
     Active Substance: POTASSIUM CHLORIDE
  19. IPRATROPIUM BROMIDE. [Concomitant]
     Active Substance: IPRATROPIUM BROMIDE
     Route: 045
  20. LATANOPROST. [Concomitant]
     Active Substance: LATANOPROST

REACTIONS (2)
  - Lip swelling [Recovered/Resolved]
  - Glossodynia [Recovered/Resolved]
